FAERS Safety Report 8712152 (Version 2)
Quarter: 2013Q1

REPORT INFORMATION
  Report Type: Spontaneous
  Country: US (occurrence: US)
  Receive Date: 20120807
  Receipt Date: 20130118
  Transmission Date: 20140127
  Serious: No
  Sender: FDA-Public Use
  Company Number: US-ASTRAZENECA-2012SE49903

PATIENT
  Age: 70 Year
  Sex: Male

DRUGS (1)
  1. VIMOVO [Suspect]
     Dosage: 500 MG/20 MG
     Route: 048

REACTIONS (2)
  - Arthritis [Unknown]
  - Malaise [Unknown]
